FAERS Safety Report 4558135-9 (Version None)
Quarter: 2005Q1

REPORT INFORMATION
  Report Type: 
  Country: None (occurrence: None)
  Receive Date: 20050103
  Receipt Date: 20041109
  Transmission Date: 20050727
  Serious: Yes (Other)
  Sender: FDA-Public Use
  Company Number: 2004UW19782

PATIENT
  Age: 62 Year
  Sex: Male
  Weight: 88.4514 kg

DRUGS (9)
  1. CRESTOR [Suspect]
     Indication: BLOOD CHOLESTEROL INCREASED
     Dosage: 10 MG DAILY PO
     Route: 048
     Dates: start: 20040601
  2. ZETIA [Concomitant]
  3. AMARYL [Concomitant]
  4. AVANDIA [Concomitant]
  5. ATENOLOL [Concomitant]
  6. IRBESARTAN [Concomitant]
  7. MULTI-VITAMINS [Concomitant]
  8. VITAMIN C [Concomitant]
  9. VITAMIN B COMPLEX CAP [Concomitant]

REACTIONS (1)
  - BLOOD CHOLESTEROL INCREASED [None]
